FAERS Safety Report 8848252 (Version 2)
Quarter: 2015Q3

REPORT INFORMATION
  Report Type: Report from Study
  Country: US (occurrence: US)
  Receive Date: 20121018
  Receipt Date: 20150812
  Transmission Date: 20151125
  Serious: Yes (Other)
  Sender: FDA-Public Use
  Company Number: US-ROCHE-1138985

PATIENT
  Sex: Male
  Weight: 33.37 kg

DRUGS (1)
  1. PROTROPIN [Suspect]
     Active Substance: SOMATREM
     Indication: PRADER-WILLI SYNDROME
     Route: 058

REACTIONS (1)
  - Hemiplegia [Unknown]
